FAERS Safety Report 8786573 (Version 1)
Quarter: 2012Q4

REPORT INFORMATION
  Report Type: 
  Country: US (occurrence: US)
  Receive Date: 20120914
  Receipt Date: 20120914
  Transmission Date: 20130627
  Serious: Yes (Other)
  Sender: FDA-Public Use
  Company Number: US-009507513-1208USA007307

PATIENT

DRUGS (8)
  1. VICTRELIS [Suspect]
     Indication: HEPATITIS C
     Dosage: 800 mg, tid
     Dates: start: 20110929, end: 20120314
  2. REBETOL [Suspect]
     Indication: HEPATITIS C
     Dosage: 800 mg, qd
     Dates: start: 20110901
  3. REBETOL [Suspect]
     Dosage: 400 mg, qd
     Dates: end: 20120314
  4. PEGINTERFERON ALFA-2A [Suspect]
     Indication: HEPATITIS C
     Dosage: 180 Microgram, qw
     Route: 058
     Dates: start: 20110901, end: 20120314
  5. SYNTHYROXINE [Concomitant]
     Indication: BASEDOW^S DISEASE
     Dosage: 100 Microgram, qd
  6. SYNTHYROXINE [Concomitant]
     Dosage: 137 Microgram, qd
  7. SYNTHYROXINE [Concomitant]
     Dosage: 112 Microgram, qd
  8. SYNTHYROXINE [Concomitant]
     Dosage: 150 Microgram, qd

REACTIONS (15)
  - Fatigue [Unknown]
  - Pain of skin [Unknown]
  - Weight increased [Unknown]
  - Glossodynia [Unknown]
  - Pain in jaw [Unknown]
  - Cough [Unknown]
  - Myalgia [Unknown]
  - Alopecia [Unknown]
  - Insomnia [Unknown]
  - Anaemia [Unknown]
  - Rash [Unknown]
  - Decreased appetite [Unknown]
  - Dysgeusia [Unknown]
  - Dysgeusia [Unknown]
  - Dysgeusia [Unknown]
